FAERS Safety Report 4405327-5 (Version None)
Quarter: 2004Q3

REPORT INFORMATION
  Report Type: 
  Country: None (occurrence: None)
  Receive Date: 20040720
  Receipt Date: 20040423
  Transmission Date: 20050211
  Serious: Yes (Hospitalization)
  Sender: FDA-Public Use
  Company Number: 2000-BL-00349 (3)

PATIENT
  Age: 25 Year
  Sex: Female

DRUGS (4)
  1. VIRAMUNE [Suspect]
     Indication: HIV INFECTION
     Dosage: SEE IMAGE
     Route: 048
     Dates: start: 20000502, end: 20000510
  2. VIRAMUNE [Suspect]
     Indication: HIV INFECTION
     Dosage: SEE IMAGE
     Route: 048
     Dates: start: 20000418, end: 20000510
  3. STAVUDINE (STAVUDINE) (KA) [Concomitant]
  4. LAMIVUDINE (LAMIVUDINE) (TA) [Concomitant]

REACTIONS (3)
  - CHOLANGITIS SCLEROSING [None]
  - CHOLECYSTITIS [None]
  - RASH ERYTHEMATOUS [None]
